FAERS Safety Report 6061881-1 (Version None)
Quarter: 2009Q1

REPORT INFORMATION
  Report Type: 
  Country: None (occurrence: None)
  Receive Date: 20090202
  Receipt Date: 20090120
  Transmission Date: 20090719
  Serious: Yes (Other)
  Sender: FDA-Public Use
  Company Number: PHHY2009CL02092

PATIENT
  Age: 65 Year
  Sex: Male

DRUGS (2)
  1. TAREG [Suspect]
     Indication: HYPERTENSION
     Dosage: 160 MG, QD
     Route: 048
     Dates: start: 20081201
  2. ATENOLOL [Concomitant]

REACTIONS (1)
  - COORDINATION ABNORMAL [None]
